FAERS Safety Report 4433949-4 (Version None)
Quarter: 2004Q3

REPORT INFORMATION
  Report Type: 
  Country: None (occurrence: None)
  Receive Date: 20040825
  Receipt Date: 20040825
  Transmission Date: 20050211
  Serious: Yes (Life-Threatening)
  Sender: FDA-Public Use
  Company Number: None

PATIENT
  Sex: Female
  Weight: 66.4 kg

DRUGS (10)
  1. TIKOSYN [Suspect]
     Indication: ATRIAL FIBRILLATION
     Dosage: 250 AND 500MCG BID ORAL
     Route: 048
     Dates: start: 20040802, end: 20040804
  2. LEVOTHYROXINE SODIUM [Concomitant]
  3. WARFARIN [Concomitant]
  4. RANDITINE [Concomitant]
  5. POTASSIUM CHLORIDE [Concomitant]
  6. METOPROLOL [Concomitant]
  7. SODIUM CHLORIDE INJ [Concomitant]
  8. FOSAMAX [Concomitant]
  9. ATENOLOL [Concomitant]
  10. FOSAMAX [Concomitant]

REACTIONS (5)
  - CARDIO-RESPIRATORY ARREST [None]
  - COMA [None]
  - HOT FLUSH [None]
  - PULSE ABSENT [None]
  - VENTRICULAR TACHYCARDIA [None]
